FAERS Safety Report 10348715 (Version 3)
Quarter: 2014Q3

REPORT INFORMATION
  Report Type: Spontaneous
  Country: US (occurrence: US)
  Receive Date: 20140729
  Receipt Date: 20140731
  Transmission Date: 20150326
  Serious: Yes (Death, Hospitalization, Other)
  Sender: FDA-Public Use
  Company Number: US-BAXTER-2014BAX036161

PATIENT
  Sex: Male

DRUGS (1)
  1. DIANEAL PD-2 WITH DEXTROSE [Suspect]
     Active Substance: CALCIUM CHLORIDE\DEXTROSE MONOHYDRATE\MAGNESIUM CHLORIDE\SODIUM CHLORIDE\SODIUM LACTATE
     Indication: PERITONEAL DIALYSIS
     Route: 033

REACTIONS (11)
  - Intra-abdominal haemorrhage [Fatal]
  - Abdominal pain [Unknown]
  - Infection [Unknown]
  - Bloody peritoneal effluent [Unknown]
  - Acute respiratory failure [Fatal]
  - Pneumonia [Unknown]
  - Abscess [Unknown]
  - Hypotension [Unknown]
  - Post procedural complication [Unknown]
  - Sepsis [Unknown]
  - Septic shock [Fatal]

NARRATIVE: CASE EVENT DATE: 20140527
